FAERS Safety Report 9452290 (Version 5)
Quarter: 2013Q4

REPORT INFORMATION
  Report Type: Report from Study
  Country: CA (occurrence: CA)
  Receive Date: 20130812
  Receipt Date: 20131213
  Transmission Date: 20140711
  Serious: Yes (Other)
  Sender: FDA-Public Use
  Company Number: CA-ROCHE-1177332

PATIENT
  Age: 42 Year
  Sex: Female
  Weight: 70.3 kg

DRUGS (12)
  1. RITUXAN [Suspect]
     Indication: RHEUMATOID ARTHRITIS
     Dosage: PREVIOUS DOSE : 18/JUL/2013.
     Route: 042
     Dates: start: 20090402
  2. INSULIN 2 [Concomitant]
  3. FOLIC ACID [Concomitant]
  4. CELEBREX [Concomitant]
  5. METHOTREXATE [Concomitant]
     Route: 048
  6. VITAMIN C [Concomitant]
  7. VALSARTAN [Concomitant]
     Indication: BLOOD PRESSURE
  8. VALSARTAN [Concomitant]
     Indication: DIABETES MELLITUS
  9. SYNTHROID [Concomitant]
  10. DIPHENHYDRAMINE HCL [Concomitant]
     Indication: PREMEDICATION
     Route: 048
     Dates: start: 20090402
  11. ACETAMINOPHEN [Concomitant]
     Indication: PREMEDICATION
     Route: 048
     Dates: start: 20090402
  12. METHYLPREDNISOLONE [Concomitant]
     Indication: PREMEDICATION
     Route: 042
     Dates: start: 20090402

REACTIONS (13)
  - Neuropathy peripheral [Unknown]
  - Blood cholesterol increased [Unknown]
  - Diplopia [Not Recovered/Not Resolved]
  - Diabetic retinopathy [Recovering/Resolving]
  - Pain in extremity [Not Recovered/Not Resolved]
  - Pain in extremity [Not Recovered/Not Resolved]
  - Nausea [Unknown]
  - Weight increased [Not Recovered/Not Resolved]
  - Arthralgia [Unknown]
  - Fatigue [Unknown]
  - Headache [Recovered/Resolved]
  - Sinusitis [Unknown]
  - Drug ineffective [Unknown]
